FAERS Safety Report 25608912 (Version 3)
Quarter: 2025Q3

REPORT INFORMATION
  Report Type: Report from Study
  Country: CO (occurrence: CO)
  Receive Date: 20250726
  Receipt Date: 20250916
  Transmission Date: 20251021
  Serious: Yes (Life-Threatening, Other)
  Sender: RECORDATI
  Company Number: CO-RECORDATI RARE DISEASE INC.-2025005154

PATIENT
  Sex: Female
  Weight: 55 kg

DRUGS (2)
  1. PANHEMATIN [Suspect]
     Active Substance: HEMIN
     Indication: Porphyria acute
     Route: 042
     Dates: start: 20250702
  2. MEROPENEM [Concomitant]
     Active Substance: MEROPENEM
     Indication: Urinary tract infection bacterial
     Dosage: 1 GRAM, Q8H
     Route: 042

REACTIONS (6)
  - Klebsiella sepsis [Recovered/Resolved]
  - Ill-defined disorder [Unknown]
  - Respiratory failure [Unknown]
  - Seizure [Unknown]
  - Off label use [Recovered/Resolved]
  - Overdose [Recovered/Resolved]

NARRATIVE: CASE EVENT DATE: 20250101
